FAERS Safety Report 15667548 (Version 11)
Quarter: 2022Q1

REPORT INFORMATION
  Report Type: Spontaneous
  Country: US (occurrence: US)
  Receive Date: 20181128
  Receipt Date: 20220106
  Transmission Date: 20220423
  Serious: Yes (Hospitalization, Other)
  Sender: FDA-Public Use
  Company Number: US-PFIZER INC-2018406921

PATIENT
  Age: 73 Year
  Sex: Female
  Weight: 59 kg

DRUGS (10)
  1. LYRICA [Suspect]
     Active Substance: PREGABALIN
     Indication: Neuropathy peripheral
     Dosage: 75 MG, 2X/DAY
     Route: 048
     Dates: start: 201807
  2. LYRICA [Suspect]
     Active Substance: PREGABALIN
     Indication: Rheumatoid arthritis
     Dosage: 75 MG, 2X/DAY
     Route: 048
     Dates: start: 201807
  3. LYRICA [Suspect]
     Active Substance: PREGABALIN
     Indication: Fibromyalgia
  4. LYRICA [Suspect]
     Active Substance: PREGABALIN
     Indication: Burning sensation
  5. LYRICA [Suspect]
     Active Substance: PREGABALIN
     Indication: Feeling of body temperature change
  6. LYRICA [Suspect]
     Active Substance: PREGABALIN
     Indication: Pain
  7. VICODIN [Concomitant]
     Active Substance: ACETAMINOPHEN\HYDROCODONE BITARTRATE
     Indication: Pain
     Dosage: 10 MG, 3X/DAY
     Dates: start: 2010
  8. VICODIN [Concomitant]
     Active Substance: ACETAMINOPHEN\HYDROCODONE BITARTRATE
     Indication: Osteoarthritis
  9. VICODIN [Concomitant]
     Active Substance: ACETAMINOPHEN\HYDROCODONE BITARTRATE
     Indication: Rheumatoid arthritis
  10. PREDNISONE [Concomitant]
     Active Substance: PREDNISONE
     Indication: Arthritis
     Dosage: 5 MG, 2X/DAY
     Dates: start: 2010

REACTIONS (11)
  - Drug dependence [Unknown]
  - Myocardial infarction [Unknown]
  - COVID-19 [Unknown]
  - Neurodegenerative disorder [Unknown]
  - Constipation [Recovered/Resolved]
  - Feeling abnormal [Unknown]
  - Amnesia [Unknown]
  - Dyslexia [Unknown]
  - Musculoskeletal chest pain [Recovering/Resolving]
  - Dyspnoea [Unknown]
  - Panic attack [Unknown]
